FAERS Safety Report 7279240-2 (Version None)
Quarter: 2011Q1

REPORT INFORMATION
  Report Type: 
  Country: None (occurrence: None)
  Receive Date: 20110207
  Receipt Date: 20110201
  Transmission Date: 20110831
  Serious: Yes (Other)
  Sender: FDA-Public Use
  Company Number: US-PFIZER INC-2011023430

PATIENT
  Sex: Female
  Weight: 62.132 kg

DRUGS (1)
  1. TOVIAZ [Suspect]
     Indication: CYSTITIS INTERSTITIAL
     Dosage: 4 MG, DAILY
     Route: 048
     Dates: start: 20101001

REACTIONS (1)
  - PAIN [None]
